FAERS Safety Report 9306215 (Version 2)
Quarter: 2013Q2

REPORT INFORMATION
  Report Type: Spontaneous
  Country: GB (occurrence: GB)
  Receive Date: 20130523
  Receipt Date: 20130603
  Transmission Date: 20140414
  Serious: Yes (Other)
  Sender: FDA-Public Use
  Company Number: GB-GLAXOSMITHKLINE-B0892500A

PATIENT
  Age: 36 Year
  Sex: Female
  Weight: 72 kg

DRUGS (5)
  1. LAMOTRIGINE [Suspect]
     Indication: BIPOLAR DISORDER
     Dosage: 400MG PER DAY
     Route: 048
     Dates: start: 201010
  2. TOPIRAMATE [Suspect]
     Indication: BIPOLAR DISORDER
     Dosage: 200MG PER DAY
     Route: 048
     Dates: start: 201101, end: 201305
  3. CO-CODAMOL [Concomitant]
     Indication: PAIN
     Route: 048
     Dates: start: 20130315
  4. FEMODENE [Concomitant]
     Indication: CONTRACEPTION
     Dosage: 1IUAX PER DAY
     Route: 048
  5. ESCITALOPRAM [Concomitant]
     Indication: BIPOLAR DISORDER
     Route: 048
     Dates: start: 20110505

REACTIONS (1)
  - Vitamin D deficiency [Unknown]
